FAERS Safety Report 10706863 (Version 1)
Quarter: 2015Q1

REPORT INFORMATION
  Report Type: Spontaneous
  Country: US (occurrence: None)
  Receive Date: 20150112
  Receipt Date: 20150112
  Transmission Date: 20150721
  Serious: Yes (Life-Threatening, Hospitalization, Other)
  Sender: FDA-Public Use
  Company Number: None

PATIENT
  Age: 57 Year
  Sex: Female
  Weight: 69.85 kg

DRUGS (2)
  1. LATUDA [Suspect]
     Active Substance: LURASIDONE HYDROCHLORIDE
     Route: 048
     Dates: start: 20140923, end: 20140930
  2. SAPHRIS [Suspect]
     Active Substance: ASENAPINE MALEATE
     Indication: PRODUCT USED FOR UNKNOWN INDICATION
     Dosage: 2-4 PILLS EACH NIGHT
     Route: 048
     Dates: start: 20140424, end: 20140430

REACTIONS (6)
  - Blood glucose increased [None]
  - Blood cholesterol increased [None]
  - Organ failure [None]
  - Seizure [None]
  - Amnesia [None]
  - Blood triglycerides increased [None]

NARRATIVE: CASE EVENT DATE: 20140424
